FAERS Safety Report 4781791-7 (Version None)
Quarter: 2005Q3

REPORT INFORMATION
  Report Type: 
  Country: None (occurrence: None)
  Receive Date: 20050927
  Receipt Date: 20050915
  Transmission Date: 20060218
  Serious: Yes (Hospitalization)
  Sender: FDA-Public Use
  Company Number: MK200509-0196-1

PATIENT
  Age: 68 Year
  Sex: Female
  Weight: 103 kg

DRUGS (12)
  1. OPTIRAY 160 [Suspect]
     Indication: CATHETERISATION CARDIAC
     Dosage: 215 ML, ONE TIME, IV
     Route: 042
     Dates: start: 20050504, end: 20050504
  2. ANGIOMAX [Suspect]
     Dosage: 72 MG AND 147 MG, IV
     Route: 042
     Dates: start: 20050504, end: 20050504
  3. ATENOLOL [Concomitant]
  4. PRAVASTATIN [Concomitant]
  5. FUROSEMIDE [Concomitant]
  6. GLIPIZIDE [Concomitant]
  7. AMLODIPINE BESYLATE [Concomitant]
  8. GABAPENTIN [Concomitant]
  9. METOLAZONE [Concomitant]
  10. GEMFIBROZIL [Concomitant]
  11. LISINOPRIL [Concomitant]
  12. ASPIRIN [Concomitant]

REACTIONS (3)
  - BLOOD CREATININE INCREASED [None]
  - NEPHROPATHY TOXIC [None]
  - REACTION TO AZO-DYES [None]
